FAERS Safety Report 12913275 (Version 1)
Quarter: 2016Q4

REPORT INFORMATION
  Report Type: Spontaneous
  Country: JP (occurrence: JP)
  Receive Date: 20161104
  Receipt Date: 20161104
  Transmission Date: 20170207
  Serious: Yes (Life-Threatening)
  Sender: FDA-Public Use
  Company Number: JP-BAUSCH-BL-2016-025332

PATIENT
  Age: 81 Year
  Sex: Female

DRUGS (4)
  1. CISPLATIN. [Suspect]
     Active Substance: CISPLATIN
     Indication: EXTRAMAMMARY PAGET^S DISEASE
     Route: 065
     Dates: start: 2011
  2. CISPLATIN. [Suspect]
     Active Substance: CISPLATIN
     Indication: METASTASIS
  3. FLUOROURACIL. [Suspect]
     Active Substance: FLUOROURACIL
     Indication: EXTRAMAMMARY PAGET^S DISEASE
     Route: 065
     Dates: start: 2011
  4. FLUOROURACIL. [Suspect]
     Active Substance: FLUOROURACIL
     Indication: METASTASES TO LYMPH NODES

REACTIONS (2)
  - Off label use [Unknown]
  - Drug ineffective [Unknown]

NARRATIVE: CASE EVENT DATE: 2011
